FAERS Safety Report 4939545-4 (Version None)
Quarter: 2006Q1

REPORT INFORMATION
  Report Type: 
  Country: None (occurrence: None)
  Receive Date: 20060310
  Receipt Date: 20060210
  Transmission Date: 20060701
  Serious: Yes (Hospitalization)
  Sender: FDA-Public Use
  Company Number: GB-AVENTIS-200611402GDDC

PATIENT
  Age: 71 Year
  Sex: Female

DRUGS (6)
  1. ARAVA [Suspect]
     Indication: RHEUMATOID ARTHRITIS
     Route: 048
     Dates: end: 20060206
  2. SIMVASTATIN [Concomitant]
     Indication: BLOOD CHOLESTEROL INCREASED
  3. DIGOXIN [Concomitant]
  4. RAMIPRIL [Concomitant]
     Indication: HYPERTENSION
  5. BISOPROLOL [Concomitant]
     Indication: MYOCARDIAL ISCHAEMIA
  6. AMITRIPTYLINE HCL [Concomitant]
     Indication: NEUROPATHY PERIPHERAL

REACTIONS (1)
  - HEPATOTOXICITY [None]
